FAERS Safety Report 5136663-5 (Version None)
Quarter: 2006Q4

REPORT INFORMATION
  Report Type: 
  Country: None (occurrence: None)
  Receive Date: 20061023
  Receipt Date: 20061010
  Transmission Date: 20070319
  Serious: Yes (Hospitalization)
  Sender: FDA-Public Use
  Company Number: 2006PV022838

PATIENT
  Age: 48 Year
  Sex: Female
  Weight: 114.3065 kg

DRUGS (7)
  1. BYETTA [Suspect]
     Indication: DIABETES MELLITUS NON-INSULIN-DEPENDENT
     Dosage: 5 + 5 + 10 + 10 MCG/BID/ SC
     Route: 058
     Dates: start: 20050501, end: 20050701
  2. BYETTA [Suspect]
     Indication: DIABETES MELLITUS NON-INSULIN-DEPENDENT
     Dosage: 5 + 5 + 10 + 10 MCG/BID/ SC
     Route: 058
     Dates: start: 20050701, end: 20060601
  3. BYETTA [Suspect]
     Indication: DIABETES MELLITUS NON-INSULIN-DEPENDENT
     Dosage: 5 + 5 + 10 + 10 MCG/BID/ SC
     Route: 058
     Dates: start: 20060701, end: 20061001
  4. BYETTA [Suspect]
     Indication: DIABETES MELLITUS NON-INSULIN-DEPENDENT
     Dosage: 5 + 5 + 10 + 10 MCG/BID/ SC
     Route: 058
     Dates: start: 20061001
  5. GLUCOVANCE [Concomitant]
  6. BENICAR [Concomitant]
  7. LESCOL [Concomitant]

REACTIONS (5)
  - BLOOD GLUCOSE DECREASED [None]
  - FOOT FRACTURE [None]
  - LOCALISED INFECTION [None]
  - MUSCLE SPASMS [None]
  - SLEEP DISORDER [None]
